FAERS Safety Report 20315250 (Version 1)
Quarter: 2022Q1

REPORT INFORMATION
  Report Type: Spontaneous
  Country: US (occurrence: None)
  Receive Date: 20220110
  Receipt Date: 20220110
  Transmission Date: 20220423
  Serious: No
  Sender: FDA-Public Use
  Company Number: US-ROCHE-2794871

PATIENT
  Sex: Female
  Weight: 77.180 kg

DRUGS (3)
  1. RITUXAN [Suspect]
     Active Substance: RITUXIMAB
     Indication: Cryoglobulinaemia
     Route: 042
     Dates: start: 2012, end: 2019
  2. RITUXAN [Suspect]
     Active Substance: RITUXIMAB
     Indication: Cryoglobulinaemia
     Dosage: FORMULATION: SHOT
     Route: 058
     Dates: start: 2019
  3. RITUXAN HYCELA [Suspect]
     Active Substance: HYALURONIDASE (HUMAN RECOMBINANT)\RITUXIMAB
     Indication: Cryoglobulinaemia
     Route: 058

REACTIONS (2)
  - Treatment noncompliance [Unknown]
  - Off label use [Unknown]
